FAERS Safety Report 11256658 (Version 1)
Quarter: 2015Q3

REPORT INFORMATION
  Report Type: Spontaneous
  Country: US (occurrence: US)
  Receive Date: 20150709
  Receipt Date: 20150709
  Transmission Date: 20151125
  Serious: No
  Sender: FDA-Public Use
  Company Number: US-PURDUE-USA-2014-0115720

PATIENT
  Age: 68 Year
  Sex: Male

DRUGS (2)
  1. BUTRANS [Suspect]
     Active Substance: BUPRENORPHINE
     Indication: ARTHRALGIA
  2. BUTRANS [Suspect]
     Active Substance: BUPRENORPHINE
     Indication: BACK PAIN
     Dosage: 5 MCG/HR, WEEKLY
     Route: 062
     Dates: start: 20140710

REACTIONS (5)
  - Gingival pain [Unknown]
  - Toothache [Unknown]
  - Feeling abnormal [Unknown]
  - Oral pain [Unknown]
  - Hypophagia [Unknown]

NARRATIVE: CASE EVENT DATE: 20140711
